FAERS Safety Report 5725932-3 (Version None)
Quarter: 2008Q2

REPORT INFORMATION
  Report Type: 
  Country: None (occurrence: None)
  Receive Date: 20080429
  Receipt Date: 20080414
  Transmission Date: 20081010
  Serious: Yes (Death, Life-Threatening, Hospitalization, Other)
  Sender: FDA-Public Use
  Company Number: 47451

PATIENT
  Age: 77 Year
  Sex: Female

DRUGS (1)
  1. COLCHICUM JTL LIQ [Suspect]
     Indication: BACK PAIN
     Dosage: 2MG EVERY OTHER DAY FOR 6 DAY

REACTIONS (16)
  - ABDOMINAL PAIN [None]
  - ACIDOSIS [None]
  - CARDIAC ARREST [None]
  - CARDIOTOXICITY [None]
  - DRUG DISPENSING ERROR [None]
  - DRUG LEVEL ABOVE THERAPEUTIC [None]
  - GENERAL PHYSICAL HEALTH DETERIORATION [None]
  - HEPATIC ENZYME INCREASED [None]
  - HEPATIC FUNCTION ABNORMAL [None]
  - HYPOAESTHESIA [None]
  - HYPOTENSION [None]
  - LEUKOCYTOSIS [None]
  - NAUSEA [None]
  - RENAL IMPAIRMENT [None]
  - RHABDOMYOLYSIS [None]
  - VOMITING [None]
